FAERS Safety Report 7659656-2 (Version None)
Quarter: 2011Q3

REPORT INFORMATION
  Report Type: 
  Country: None (occurrence: None)
  Receive Date: 20110805
  Receipt Date: 20110801
  Transmission Date: 20111222
  Serious: Yes (Death)
  Sender: FDA-Public Use
  Company Number: CL-ASTRAZENECA-2011SE46531

PATIENT
  Age: 88 Year
  Sex: Female

DRUGS (1)
  1. SEROQUEL [Suspect]
     Indication: NERVOUS SYSTEM DISORDER
     Dosage: 3/4 TABLET DAILY
     Route: 048
     Dates: start: 20090419

REACTIONS (1)
  - DEATH [None]
